FAERS Safety Report 22117339 (Version 1)
Quarter: 2023Q1

REPORT INFORMATION
  Report Type: Report from Study
  Country: US (occurrence: US)
  Receive Date: 20230320
  Receipt Date: 20230320
  Transmission Date: 20230418
  Serious: Yes (Other)
  Sender: FDA-Public Use
  Company Number: US-ABBVIE-4315506

PATIENT
  Age: 54 Year
  Sex: Male

DRUGS (2)
  1. SKYRIZI [Suspect]
     Active Substance: RISANKIZUMAB-RZAA
     Indication: Psoriatic arthropathy
     Dosage: WEEK 4?FORM STRENGTH WAS 150 MILLIGRAMS
     Route: 058
     Dates: start: 202301
  2. SKYRIZI [Suspect]
     Active Substance: RISANKIZUMAB-RZAA
     Indication: Psoriasis
     Dosage: WEEK 0?FORM STRENGTH WAS 150 MILLIGRAMS
     Route: 058
     Dates: start: 20221222, end: 20221222

REACTIONS (8)
  - Systemic lupus erythematosus [Unknown]
  - Feeling cold [Recovering/Resolving]
  - Gout [Unknown]
  - Gait disturbance [Not Recovered/Not Resolved]
  - Erythema [Recovering/Resolving]
  - Rheumatoid arthritis [Unknown]
  - Chills [Recovering/Resolving]
  - Mobility decreased [Not Recovered/Not Resolved]

NARRATIVE: CASE EVENT DATE: 20230202
